FAERS Safety Report 14703183 (Version 3)
Quarter: 2018Q3

REPORT INFORMATION
  Report Type: Spontaneous
  Country: GB (occurrence: GB)
  Receive Date: 20180402
  Receipt Date: 20180706
  Transmission Date: 20181010
  Serious: Yes (Hospitalization, Other)
  Sender: FDA-Public Use
  Company Number: GB-BAUSCH-BL-2018-008187

PATIENT
  Age: 31 Year
  Sex: Male

DRUGS (8)
  1. CISPLATIN. [Suspect]
     Active Substance: CISPLATIN
     Dosage: 100 UNKNOWN UNIT
     Route: 065
     Dates: start: 20130904
  2. FLUOROURACIL. [Suspect]
     Active Substance: FLUOROURACIL
     Indication: NASOPHARYNGEAL CANCER
     Route: 065
     Dates: start: 20130727
  3. CISPLATIN. [Suspect]
     Active Substance: CISPLATIN
     Route: 065
     Dates: start: 20131021
  4. FLUOROURACIL. [Suspect]
     Active Substance: FLUOROURACIL
     Dosage: 1 UNKNOWN UNIT
     Route: 065
     Dates: start: 20130814
  5. CISPLATIN. [Suspect]
     Active Substance: CISPLATIN
     Indication: NASOPHARYNGEAL CANCER
     Route: 065
     Dates: start: 20130727
  6. CISPLATIN. [Suspect]
     Active Substance: CISPLATIN
     Dosage: 100 UNKNOWN UNIT
     Route: 065
     Dates: start: 20130814
  7. CISPLATIN. [Suspect]
     Active Substance: CISPLATIN
     Dosage: 100 UNKNOWN DOSE
     Route: 065
     Dates: start: 20130930
  8. FLUOROURACIL. [Suspect]
     Active Substance: FLUOROURACIL
     Dosage: 1 UNKNOWN UNIT
     Route: 065
     Dates: start: 20130904

REACTIONS (2)
  - Pharyngeal abscess [Recovered/Resolved]
  - Staphylococcal abscess [Recovered/Resolved]

NARRATIVE: CASE EVENT DATE: 20150323
